FAERS Safety Report 8808897 (Version 1)
Quarter: 2012Q4

REPORT INFORMATION
  Report Type: 
  Country: US (occurrence: US)
  Receive Date: 20120926
  Receipt Date: 20120926
  Transmission Date: 20130627
  Serious: Yes (Other)
  Sender: FDA-Public Use
  Company Number: US-MYLANLABS-2012S1016125

PATIENT
  Age: 63 Year
  Sex: Female
  Weight: 92.99 kg

DRUGS (12)
  1. METFORMIN HYDROCHLORIDE [Suspect]
     Indication: TYPE 2 DIABETES MELLITUS
     Route: 048
     Dates: start: 2011, end: 20120724
  2. ZETIA [Concomitant]
  3. HUMALOG [Concomitant]
  4. HCTZ [Concomitant]
  5. LIPITOR [Concomitant]
  6. IMDUR [Concomitant]
  7. LANTUS [Concomitant]
  8. LEVOTHYROXINE [Concomitant]
  9. OMEPRAZOLE [Concomitant]
  10. BISOPROLOL [Concomitant]
  11. DILTIAZEM [Concomitant]
  12. K-DUR [Concomitant]

REACTIONS (3)
  - Angioedema [Not Recovered/Not Resolved]
  - Urticaria [Not Recovered/Not Resolved]
  - Stomatitis [Recovered/Resolved]
